FAERS Safety Report 23578964 (Version 1)
Quarter: 2024Q1

REPORT INFORMATION
  Report Type: Spontaneous
  Country: US (occurrence: US)
  Receive Date: 20240229
  Receipt Date: 20240229
  Transmission Date: 20240409
  Serious: Yes (Other)
  Sender: FDA-Public Use
  Company Number: US-TEVA-VS-3161671

PATIENT
  Age: 90 Year
  Sex: Female
  Weight: 78.02 kg

DRUGS (1)
  1. PROAIR HFA [Suspect]
     Active Substance: ALBUTEROL SULFATE
     Dosage: 2 PUFFS 4-5 TIMES A DAY, STARTED SEVERAL YEARS AGO
     Route: 065

REACTIONS (7)
  - Pneumonia [Unknown]
  - Drug ineffective for unapproved indication [Unknown]
  - Intentional product misuse [Unknown]
  - Respiratory disorder [Unknown]
  - Transfusion [Unknown]
  - Aneurysm [Unknown]
  - Product availability issue [Unknown]
